FAERS Safety Report 6663106-2 (Version None)
Quarter: 2010Q2

REPORT INFORMATION
  Report Type: 
  Country: None (occurrence: None)
  Receive Date: 20100401
  Receipt Date: 20100330
  Transmission Date: 20101027
  Serious: Yes (Hospitalization, Other)
  Sender: FDA-Public Use
  Company Number: IT-ROXANE LABORATORIES, INC.-2010-RO-00359RO

PATIENT
  Age: 54 Year
  Sex: Female

DRUGS (9)
  1. PREDNISONE TAB [Suspect]
     Indication: ANAEMIA HAEMOLYTIC AUTOIMMUNE
  2. CLARITHROMYCIN [Suspect]
     Indication: MYCOBACTERIUM ABSCESSUS INFECTION
     Dosage: 1000 MG
  3. CEFOTAXIME [Suspect]
     Indication: MASTITIS BACTERIAL
     Dosage: 2 G
  4. CEFOTAXIME [Suspect]
     Indication: PSEUDOMONAS INFECTION
     Dosage: 3 G
  5. CEFOTAXIME [Suspect]
     Indication: STAPHYLOCOCCAL INFECTION
  6. CIPROFLOXACIN [Suspect]
     Indication: PSEUDOMONAS INFECTION
     Dosage: 1000 MG
     Route: 048
  7. CIPROFLOXACIN [Suspect]
     Indication: STAPHYLOCOCCAL INFECTION
  8. IMIPENEM [Suspect]
     Indication: MYCOBACTERIUM ABSCESSUS INFECTION
     Dosage: 2 G
  9. AMIKACIN [Suspect]
     Indication: MYCOBACTERIUM ABSCESSUS INFECTION
     Dosage: 1 G

REACTIONS (8)
  - ACID FAST BACILLI INFECTION [None]
  - DISEASE RECURRENCE [None]
  - DRUG INEFFECTIVE [None]
  - MASTITIS BACTERIAL [None]
  - MYCOBACTERIUM ABSCESSUS INFECTION [None]
  - PSEUDOMONAS INFECTION [None]
  - STAPHYLOCOCCAL INFECTION [None]
  - VESTIBULAR DISORDER [None]
